FAERS Safety Report 4717225-8 (Version None)
Quarter: 2005Q3

REPORT INFORMATION
  Report Type: 
  Country: None (occurrence: None)
  Receive Date: 20050715
  Receipt Date: 20050705
  Transmission Date: 20060218
  Serious: Yes (Death, Hospitalization)
  Sender: FDA-Public Use
  Company Number: 2005096204

PATIENT
  Age: 74 Year
  Sex: Male

DRUGS (2)
  1. XALATAN [Suspect]
     Indication: GLAUCOMA
     Dosage: SINGLE INTERVAL: EVERYDAY), OPHTHALMIC
     Route: 047
     Dates: start: 20020104, end: 20040530
  2. GLYBURIDE [Concomitant]

REACTIONS (4)
  - ACUTE MYELOID LEUKAEMIA [None]
  - DYSPNOEA [None]
  - INFARCTION [None]
  - MALAISE [None]
